FAERS Safety Report 18319686 (Version 1)
Quarter: 2020Q3

REPORT INFORMATION
  Report Type: Spontaneous
  Country: JP (occurrence: JP)
  Receive Date: 20200928
  Receipt Date: 20200928
  Transmission Date: 20201103
  Serious: Yes (Other)
  Sender: FDA-Public Use
  Company Number: JP-CMP PHARMA-2020CMP00024

PATIENT
  Age: 69 Year
  Sex: Female

DRUGS (2)
  1. TRIAMCINOLONE [Suspect]
     Active Substance: TRIAMCINOLONE
     Indication: MACULAR OEDEMA
     Dosage: UNK
     Route: 031
     Dates: start: 2020
  2. TRIAMCINOLONE [Suspect]
     Active Substance: TRIAMCINOLONE
     Dosage: UNK
     Route: 031
     Dates: start: 2020

REACTIONS (1)
  - Orbital infection [Recovered/Resolved]

NARRATIVE: CASE EVENT DATE: 2020
